FAERS Safety Report 17976255 (Version 6)
Quarter: 2021Q1

REPORT INFORMATION
  Report Type: Report from Study
  Country: FR (occurrence: FR)
  Receive Date: 20200702
  Receipt Date: 20210316
  Transmission Date: 20210419
  Serious: Yes (Hospitalization)
  Sender: FDA-Public Use
  Company Number: FR-EXELIXIS-XL18420030872

PATIENT
  Age: 70 Year
  Sex: Female
  Weight: 75 kg

DRUGS (12)
  1. LANSOPRAZOL [Concomitant]
     Active Substance: LANSOPRAZOLE
  2. LEVOTHYROXINE. [Concomitant]
     Active Substance: LEVOTHYROXINE
  3. DOLIPRANE [Concomitant]
     Active Substance: ACETAMINOPHEN
  4. TRIVASTAL [Concomitant]
     Active Substance: PIRIBEDIL
  5. MAG 2 [Concomitant]
     Active Substance: MAGNESIUM
  6. XGEVA [Concomitant]
     Active Substance: DENOSUMAB
  7. SIFROL [Concomitant]
     Active Substance: PRAMIPEXOLE
  8. XL184 [Suspect]
     Active Substance: CABOZANTINIB
     Indication: THYROID CANCER
     Dosage: 60 MG, QD
     Route: 048
     Dates: start: 20200131
  9. CALCIUM [Concomitant]
     Active Substance: CALCIUM
  10. FORTIMEL COMPACT PROTEIN [Concomitant]
  11. XL184 [Suspect]
     Active Substance: CABOZANTINIB
     Dosage: 40 MG, QD
     Route: 048
     Dates: end: 20200622
  12. RASAGILINE ACCORD [Concomitant]

REACTIONS (1)
  - Laryngeal necrosis [Recovered/Resolved]

NARRATIVE: CASE EVENT DATE: 20200622
